FAERS Safety Report 10237152 (Version 5)
Quarter: 2015Q2

REPORT INFORMATION
  Report Type: Spontaneous
  Country: US (occurrence: US)
  Receive Date: 20140613
  Receipt Date: 20150406
  Transmission Date: 20150821
  Serious: Yes (Other)
  Sender: FDA-Public Use
  Company Number: US-GLAXOSMITHKLINE-A1077008A

PATIENT
  Sex: Male

DRUGS (6)
  1. LAMICTAL [Suspect]
     Active Substance: LAMOTRIGINE
     Indication: DISSOCIATIVE DISORDER
     Dosage: 200 MG
     Route: 065
     Dates: start: 1999
  2. LAMICTAL [Suspect]
     Active Substance: LAMOTRIGINE
     Indication: POST-TRAUMATIC STRESS DISORDER
  3. LAMICTAL [Suspect]
     Active Substance: LAMOTRIGINE
     Indication: BRAIN INJURY
  4. LAMOTRIGINE. [Suspect]
     Active Substance: LAMOTRIGINE
     Indication: PRODUCT USED FOR UNKNOWN INDICATION
     Dosage: UNKNOWN
     Route: 065
  5. LAMICTAL [Suspect]
     Active Substance: LAMOTRIGINE
     Indication: NERVOUS SYSTEM DISORDER
  6. LAMOTRIGINE. [Suspect]
     Active Substance: LAMOTRIGINE
     Indication: PRODUCT USED FOR UNKNOWN INDICATION
     Dosage: UNKNOWN
     Route: 065

REACTIONS (9)
  - Hallucination [Unknown]
  - Mental impairment [Unknown]
  - Accident at work [Unknown]
  - Memory impairment [Recovered/Resolved]
  - Drug ineffective [Unknown]
  - Road traffic accident [Unknown]
  - Seizure [Recovered/Resolved]
  - Drug administration error [Unknown]
  - Suicidal ideation [Recovered/Resolved]
